FAERS Safety Report 8272930-4 (Version None)
Quarter: 2012Q2

REPORT INFORMATION
  Report Type: 
  Country: None (occurrence: None)
  Receive Date: 20120411
  Receipt Date: 20120329
  Transmission Date: 20120825
  Serious: Yes (Other)
  Sender: FDA-Public Use
  Company Number: NL-ELI_LILLY_AND_COMPANY-NL201204000787

PATIENT
  Sex: Male

DRUGS (1)
  1. STRATTERA [Suspect]
     Dosage: UNK, UNKNOWN

REACTIONS (2)
  - ERECTILE DYSFUNCTION [None]
  - HEPATITIS [None]
